FAERS Safety Report 8586569-4 (Version None)
Quarter: 2012Q3

REPORT INFORMATION
  Report Type: 
  Country: None (occurrence: None)
  Receive Date: 20120730
  Receipt Date: 20120716
  Transmission Date: 20120928
  Serious: Yes (Disabling)
  Sender: FDA-Public Use
  Company Number: FK201201983

PATIENT
  Age: 65 Year
  Sex: Female

DRUGS (1)
  1. PAMIDRONATE (MANUFACTURER UNKNOWN) (PAMIDRONATE DISODIUM) (PAMIDRONATE [Suspect]
     Indication: PRODUCT USED FOR UNKNOWN INDICATION
     Dosage: INTRAVENOUS (NOT OTHERWISE SPECIFIED)
     Route: 042

REACTIONS (4)
  - MUSCLE RIGIDITY [None]
  - JOINT CONTRACTURE [None]
  - MUSCLE SPASMS [None]
  - JOINT CREPITATION [None]
